FAERS Safety Report 20825626 (Version 2)
Quarter: 2022Q2

REPORT INFORMATION
  Report Type: Spontaneous
  Country: US (occurrence: US)
  Receive Date: 20220513
  Receipt Date: 20220526
  Transmission Date: 20220721
  Serious: Yes (Hospitalization, Other)
  Sender: FDA-Public Use
  Company Number: US-Hikma Pharmaceuticals USA Inc.-US-H14001-22-01205

PATIENT
  Age: 65 Year
  Sex: Male

DRUGS (2)
  1. DOXYCYCLINE [Suspect]
     Active Substance: DOXYCYCLINE
     Indication: Product used for unknown indication
     Dosage: UNKNOWN
     Route: 065
  2. METFORMIN [Concomitant]
     Active Substance: METFORMIN HYDROCHLORIDE
     Indication: Product used for unknown indication
     Dosage: UNKNOWN
     Route: 065

REACTIONS (14)
  - Urticaria [Recovering/Resolving]
  - Constipation [Recovering/Resolving]
  - Drug hypersensitivity [Recovering/Resolving]
  - Contusion [Recovering/Resolving]
  - Hyperkeratosis [Recovering/Resolving]
  - Condition aggravated [Recovering/Resolving]
  - Blood glucose increased [Recovering/Resolving]
  - Burning sensation [Recovering/Resolving]
  - Pyrexia [Unknown]
  - Malaise [Unknown]
  - Feeling hot [Unknown]
  - General physical health deterioration [Unknown]
  - Limb injury [Unknown]
  - Male reproductive tract disorder [Unknown]
